FAERS Safety Report 6725272-X (Version None)
Quarter: 2010Q2

REPORT INFORMATION
  Report Type: 
  Country: None (occurrence: None)
  Receive Date: 20100512
  Receipt Date: 20100427
  Transmission Date: 20101027
  Serious: Yes (Other)
  Sender: FDA-Public Use
  Company Number: B0650968A

PATIENT
  Age: 58 Year
  Sex: Male

DRUGS (3)
  1. MELPHALAN HYDROCHLORIDE [Suspect]
     Indication: NON-HODGKIN'S LYMPHOMA
     Dosage: 130 MG/ M2 INTRAVENOUS
     Route: 042
  2. THIOTEPA [Suspect]
     Indication: NON-HODGKIN'S LYMPHOMA
     Dosage: 250 MG/M2, INTRAVENOUS
  3. STEM CELL TRANSPLANT [Concomitant]

REACTIONS (3)
  - DRUG TOXICITY [None]
  - GASTROINTESTINAL TOXICITY [None]
  - HEPATOTOXICITY [None]
